FAERS Safety Report 9278389 (Version 1)
Quarter: 2012Q4

REPORT INFORMATION
  Report Type: Spontaneous
  Country: BR (occurrence: None)
  Receive Date: 20121109
  Receipt Date: 20121109
  Transmission Date: 20130627
  Serious: Yes (Death, Hospitalization, Other)
  Sender: FDA-Public Use
  Company Number: 2012S1000739

PATIENT
  Age: 53 Year
  Sex: Male

DRUGS (10)
  1. CUBICIN [Suspect]
     Indication: ENDOCARDITIS
     Route: 042
     Dates: start: 20100510, end: 20100616
  2. OXACILLIN [Concomitant]
  3. VANCOMYCIN [Concomitant]
  4. PIPERACILLIN\TAZOBACTAM [Concomitant]
  5. RIFAMPIN [Concomitant]
  6. GENTAMICIN [Concomitant]
  7. IMIPENEM [Concomitant]
  8. COLISTIN [Concomitant]
  9. LINEZOLID [Concomitant]
  10. PREDNISONE [Concomitant]

REACTIONS (1)
  - Arrhythmia [None]
